FAERS Safety Report 10377992 (Version 2)
Quarter: 2014Q3

REPORT INFORMATION
  Report Type: Spontaneous
  Country: DE (occurrence: JP)
  Receive Date: 20140812
  Receipt Date: 20140923
  Transmission Date: 20150326
  Serious: Yes (Other)
  Sender: FDA-Public Use
  Company Number: JP-BRACCO-008312

PATIENT
  Sex: Male

DRUGS (2)
  1. CIBENOL [Concomitant]
     Active Substance: CIFENLINE
     Route: 048
  2. IOPAMIRON [Suspect]
     Active Substance: IOPAMIDOL
     Indication: DIAGNOSTIC PROCEDURE
     Dosage: LOT NUMBER AND EXPIRATION DATE NOT REPORTED
     Dates: start: 20130123, end: 20130123

REACTIONS (5)
  - Paraesthesia [Unknown]
  - Atrial fibrillation [Unknown]
  - Anxiety [Unknown]
  - Abdominal pain [Unknown]
  - Arrhythmia [Unknown]

NARRATIVE: CASE EVENT DATE: 20130131
